FAERS Safety Report 8896493 (Version 1)
Quarter: 2012Q4

REPORT INFORMATION
  Report Type: Report from Study
  Country: AR (occurrence: AR)
  Receive Date: 20121108
  Receipt Date: 20121108
  Transmission Date: 20130627
  Serious: Yes (Life-Threatening, Hospitalization, Other)
  Sender: FDA-Public Use
  Company Number: AR-EISAI INC-E2007-00803-CLI-AR

PATIENT
  Age: 30 Year
  Sex: Female
  Weight: 52 kg

DRUGS (9)
  1. PERAMPANEL [Suspect]
     Indication: EPILEPSY
     Dosage: CONVERSION PHASE
     Route: 048
     Dates: start: 20100310, end: 2010
  2. PERAMPANEL [Suspect]
     Dosage: MAINTENANCE PHASE - 12MG
     Route: 048
     Dates: start: 20100721, end: 20110331
  3. PERAMPANEL [Suspect]
     Dosage: MAINTENANCE PHASE - 12MG
     Route: 048
     Dates: start: 20110406, end: 20110621
  4. PERAMPANEL [Suspect]
     Route: 048
     Dates: start: 20110725, end: 20120410
  5. CARBAMAZEPINE [Suspect]
     Indication: EPILEPSY
     Route: 048
     Dates: start: 2004
  6. CARBAMAZEPINE [Suspect]
     Route: 048
     Dates: end: 20120413
  7. CARBAMAZEPINE [Suspect]
     Route: 048
     Dates: start: 20120414, end: 20120516
  8. CARBAMAZEPINE [Suspect]
     Route: 048
     Dates: start: 20120516
  9. SODIUM VALPROATE [Suspect]
     Route: 048
     Dates: start: 2009

REACTIONS (14)
  - Abortion spontaneous incomplete [Recovered/Resolved]
  - Status epilepticus [Recovered/Resolved]
  - Exposure during pregnancy [Recovered/Resolved]
  - Grand mal convulsion [None]
  - Pregnancy [None]
  - Maternal exposure during pregnancy [None]
  - Delirium [None]
  - Hypokalaemia [None]
  - Renal failure acute [None]
  - Rhabdomyolysis [None]
  - Psychotic disorder [None]
  - Treatment noncompliance [None]
  - Incorrect dose administered [None]
  - Lung infection [None]
